FAERS Safety Report 10405424 (Version 3)
Quarter: 2014Q3

REPORT INFORMATION
  Report Type: Spontaneous
  Country: US (occurrence: US)
  Receive Date: 20140825
  Receipt Date: 20140911
  Transmission Date: 20150326
  Serious: Yes (Hospitalization, Other)
  Sender: FDA-Public Use
  Company Number: US-UNITED THERAPEUTICS-UNT-2014-005230

PATIENT
  Age: 46 Year
  Sex: Male
  Weight: 79.37 kg

DRUGS (4)
  1. WARFARIN [Concomitant]
     Active Substance: WARFARIN
     Indication: PRODUCT USED FOR UNKNOWN INDICATION
  2. ADCIRCA [Concomitant]
     Active Substance: TADALAFIL
     Indication: PRODUCT USED FOR UNKNOWN INDICATION
  3. REMODULIN [Suspect]
     Active Substance: TREPROSTINIL
     Indication: PULMONARY ARTERIAL HYPERTENSION
     Dosage: 0.164 ?G/KG, CONTINUING
     Route: 041
     Dates: start: 20070214
  4. REMODULIN [Suspect]
     Active Substance: TREPROSTINIL
     Dosage: 0.164 ?G/KG, CONTINUING
     Route: 041
     Dates: start: 20120518

REACTIONS (6)
  - Infection [Unknown]
  - Accidental overdose [Unknown]
  - Asthenia [Unknown]
  - Injection site erythema [Unknown]
  - Device related infection [Recovered/Resolved]
  - Nausea [Unknown]

NARRATIVE: CASE EVENT DATE: 2014
